FAERS Safety Report 9818387 (Version 2)
Quarter: 2014Q1

REPORT INFORMATION
  Report Type: Spontaneous
  Country: US (occurrence: US)
  Receive Date: 20140115
  Receipt Date: 20140306
  Transmission Date: 20141002
  Serious: No
  Sender: FDA-Public Use
  Company Number: US-PFIZER INC-2014010233

PATIENT
  Age: 57 Year
  Sex: Female
  Weight: 61.22 kg

DRUGS (1)
  1. ADVIL [Suspect]
     Indication: MIGRAINE
     Dosage: 3 TABLETS AT A TIME AS NEEDED
     Route: 048
     Dates: start: 201401

REACTIONS (2)
  - Extra dose administered [Unknown]
  - Drug effect delayed [Unknown]
